FAERS Safety Report 4313757-5 (Version None)
Quarter: 2004Q1

REPORT INFORMATION
  Report Type: 
  Country: None (occurrence: None)
  Receive Date: 20040305
  Receipt Date: 20040220
  Transmission Date: 20041129
  Serious: Yes (Disabling)
  Sender: FDA-Public Use
  Company Number: 200212999

PATIENT
  Age: 51 Year
  Sex: Female

DRUGS (1)
  1. BOTOX COSMETIC [Suspect]
     Indication: SKIN WRINKLING
     Dosage: 60 UNITS PRN IM
     Route: 030
     Dates: start: 20020618

REACTIONS (15)
  - BURNING SENSATION [None]
  - DECREASED ACTIVITY [None]
  - DYSPHAGIA [None]
  - HOARSENESS [None]
  - HYPOAESTHESIA [None]
  - INFLUENZA LIKE ILLNESS [None]
  - INSOMNIA [None]
  - LARYNGEAL OEDEMA [None]
  - MUSCLE TIGHTNESS [None]
  - MUSCULOSKELETAL STIFFNESS [None]
  - NEUROPATHY PERIPHERAL [None]
  - ORAL DISCOMFORT [None]
  - PALATAL DISORDER [None]
  - PARAESTHESIA [None]
  - THROAT IRRITATION [None]
